FAERS Safety Report 17480751 (Version 1)
Quarter: 2020Q1

REPORT INFORMATION
  Report Type: Spontaneous
  Country: US (occurrence: US)
  Receive Date: 20200301
  Receipt Date: 20200301
  Transmission Date: 20200409
  Serious: Yes (Hospitalization)
  Sender: FDA-Public Use
  Company Number: US-VISTAPHARM, INC.-VER201906-000457

PATIENT
  Age: 63 Year
  Sex: Female
  Weight: 65.83 kg

DRUGS (3)
  1. ASPIRIN. [Concomitant]
     Active Substance: ASPIRIN
     Indication: PAIN
     Dosage: 325 MG
  2. OXYCODONE [Suspect]
     Active Substance: OXYCODONE
     Indication: PAIN
     Dosage: LAST YEAR WHEN PATIENT HAD SURGERY ON THE LEFT SHOULDER
     Route: 048
     Dates: start: 2018
  3. OXYCODONE [Suspect]
     Active Substance: OXYCODONE
     Dosage: 5- 10 ML (HALF A TEASPOON)
     Route: 048
     Dates: start: 20190614, end: 2019

REACTIONS (4)
  - Dyspnoea [Unknown]
  - Pruritus [Unknown]
  - Rash [Unknown]
  - Lip swelling [Unknown]

NARRATIVE: CASE EVENT DATE: 201906
